FAERS Safety Report 7445323-7 (Version None)
Quarter: 2011Q2

REPORT INFORMATION
  Report Type: 
  Country: None (occurrence: None)
  Receive Date: 20110429
  Receipt Date: 20100421
  Transmission Date: 20111010
  Serious: No
  Sender: FDA-Public Use
  Company Number: A0856776A

PATIENT
  Sex: Female

DRUGS (3)
  1. ZOFRAN [Suspect]
     Dosage: 4MG SINGLE DOSE
     Route: 042
     Dates: start: 20100219
  2. TRANSDERM SCOP [Suspect]
     Dosage: 1PAT SINGLE DOSE
     Route: 062
     Dates: start: 20100219
  3. DECADRON [Suspect]
     Dosage: 4MG SINGLE DOSE
     Route: 042
     Dates: start: 20100219

REACTIONS (1)
  - HYPERMETROPIA [None]
